FAERS Safety Report 14731231 (Version 4)
Quarter: 2018Q2

REPORT INFORMATION
  Report Type: Spontaneous
  Country: AU (occurrence: AU)
  Receive Date: 20180406
  Receipt Date: 20180517
  Transmission Date: 20180711
  Serious: Yes (Other)
  Sender: FDA-Public Use
  Company Number: AU-BEH-2018089605

PATIENT
  Age: 20 Year
  Sex: Female

DRUGS (3)
  1. HIZENTRA [Suspect]
     Active Substance: HUMAN IMMUNOGLOBULIN G
     Dosage: UNK
     Route: 058
  2. HIZENTRA [Suspect]
     Active Substance: HUMAN IMMUNOGLOBULIN G
     Dosage: 9 G, QW
     Route: 058
     Dates: start: 20180323
  3. HIZENTRA [Suspect]
     Active Substance: HUMAN IMMUNOGLOBULIN G
     Indication: IMMUNODEFICIENCY COMMON VARIABLE
     Dosage: UNK
     Route: 058

REACTIONS (5)
  - Administration site pain [Recovered/Resolved with Sequelae]
  - Administration site infection [Unknown]
  - Administration site erythema [Recovered/Resolved with Sequelae]
  - Administration site swelling [Recovered/Resolved with Sequelae]
  - Administration site vesicles [Recovered/Resolved with Sequelae]

NARRATIVE: CASE EVENT DATE: 20180323
